FAERS Safety Report 9259453 (Version 1)
Quarter: 2013Q2

REPORT INFORMATION
  Report Type: Spontaneous
  Country: US (occurrence: US)
  Receive Date: 20130428
  Receipt Date: 20130428
  Transmission Date: 20140414
  Serious: No
  Sender: FDA-Public Use
  Company Number: US-ASTRAZENECA-2013SE25359

PATIENT
  Age: 42 Year
  Sex: Female

DRUGS (1)
  1. BRILINTA [Suspect]
     Indication: STENT PLACEMENT
     Route: 048

REACTIONS (3)
  - Drug intolerance [Unknown]
  - Haemorrhage [Unknown]
  - Dyspnoea [Unknown]
